FAERS Safety Report 8921748 (Version 1)
Quarter: 2012Q4

REPORT INFORMATION
  Report Type: Report from Study
  Country: CA (occurrence: CA)
  Receive Date: 20121121
  Receipt Date: 20121121
  Transmission Date: 20130627
  Serious: Yes (Other)
  Sender: FDA-Public Use
  Company Number: CA-JNJFOC-20121107056

PATIENT
  Age: 65 Year
  Sex: Female

DRUGS (3)
  1. SIMPONI [Suspect]
     Indication: RHEUMATOID ARTHRITIS
     Dates: start: 20121030, end: 20121030
  2. KEFLEX [Concomitant]
  3. FLAMAZINE [Concomitant]

REACTIONS (1)
  - Infected skin ulcer [Not Recovered/Not Resolved]
